FAERS Safety Report 7356387-3 (Version None)
Quarter: 2011Q1

REPORT INFORMATION
  Report Type: 
  Country: None (occurrence: None)
  Receive Date: 20110316
  Receipt Date: 20110309
  Transmission Date: 20110831
  Serious: Yes (Hospitalization, Other)
  Sender: FDA-Public Use
  Company Number: US-ELI_LILLY_AND_COMPANY-US201103003392

PATIENT
  Sex: Female

DRUGS (6)
  1. HUMALOG MIX 75/25 [Suspect]
     Dosage: 6 U, EACH EVENING
     Dates: start: 20110223
  2. HUMALOG MIX 75/25 [Suspect]
     Indication: TYPE 1 DIABETES MELLITUS
     Dosage: 17 U, EACH MORNING
     Dates: start: 20110223
  3. HUMALOG MIX 75/25 [Suspect]
     Dosage: UNK, AS NEEDED
     Dates: start: 20110223
  4. HUMALOG MIX 75/25 [Suspect]
     Indication: DIABETES MELLITUS
  5. HUMALOG [Suspect]
  6. HUMALOG MIX 75/25 [Suspect]
     Dosage: 4 U, DAILY (1/D)
     Dates: start: 20110223

REACTIONS (4)
  - LOSS OF CONSCIOUSNESS [None]
  - BLOOD PRESSURE ORTHOSTATIC DECREASED [None]
  - OXYGEN SATURATION DECREASED [None]
  - BLOOD GLUCOSE FLUCTUATION [None]
